FAERS Safety Report 8288876-1 (Version None)
Quarter: 2012Q2

REPORT INFORMATION
  Report Type: 
  Country: None (occurrence: None)
  Receive Date: 20120412
  Receipt Date: 20120330
  Transmission Date: 20120825
  Serious: Yes (Hospitalization)
  Sender: FDA-Public Use
  Company Number: FK201200975

PATIENT
  Age: 58 Year
  Sex: Male

DRUGS (1)
  1. OXALIPLATIN [Suspect]
     Indication: COLON CANCER
     Dosage: 85 MG/M2, INTRAVENOUS DRIP
     Route: 041

REACTIONS (3)
  - UNEVALUABLE EVENT [None]
  - DIALYSIS [None]
  - HAEMOLYTIC ANAEMIA [None]
